FAERS Safety Report 7707402-6 (Version None)
Quarter: 2011Q3

REPORT INFORMATION
  Report Type: 
  Country: None (occurrence: None)
  Receive Date: 20110824
  Receipt Date: 20110819
  Transmission Date: 20111222
  Serious: Yes (Death, Hospitalization, Disabling)
  Sender: FDA-Public Use
  Company Number: US-US-EMD SERONO, INC.-7067949

PATIENT
  Sex: Male

DRUGS (1)
  1. REBIF [Suspect]
     Indication: PRIMARY PROGRESSIVE MULTIPLE SCLEROSIS
     Route: 058
     Dates: start: 20021223, end: 20110801

REACTIONS (6)
  - ASPIRATION [None]
  - BEDRIDDEN [None]
  - WEIGHT DECREASED [None]
  - OEDEMA PERIPHERAL [None]
  - BLOOD POTASSIUM ABNORMAL [None]
  - BLOOD SODIUM ABNORMAL [None]
